FAERS Safety Report 17779477 (Version 1)
Quarter: 2020Q2

REPORT INFORMATION
  Report Type: Spontaneous
  Country: US (occurrence: US)
  Receive Date: 20200513
  Receipt Date: 20200513
  Transmission Date: 20200714
  Serious: No
  Sender: FDA-Public Use
  Company Number: US-SA-2020SA118777

PATIENT
  Age: 22 Year
  Sex: Female
  Weight: 64.85 kg

DRUGS (4)
  1. EPINEPHRINE. [Concomitant]
     Active Substance: EPINEPHRINE
     Route: 065
  2. ZYRTEC [Concomitant]
     Active Substance: CETIRIZINE HYDROCHLORIDE
     Route: 065
  3. DUPIXENT [Suspect]
     Active Substance: DUPILUMAB
     Indication: DERMATITIS ATOPIC
     Dosage: 300 MG, QOW
     Route: 058
     Dates: start: 201912, end: 20200416
  4. MULTIVITAMINS [VITAMINS NOS] [Concomitant]
     Active Substance: VITAMINS
     Route: 065

REACTIONS (2)
  - Dry skin [Unknown]
  - Product dose omission [Unknown]

NARRATIVE: CASE EVENT DATE: 2020
